FAERS Safety Report 12905222 (Version 2)
Quarter: 2016Q4

REPORT INFORMATION
  Report Type: Report from Study
  Country: US (occurrence: US)
  Receive Date: 20161102
  Receipt Date: 20161103
  Transmission Date: 20170207
  Serious: Yes (Other)
  Sender: FDA-Public Use
  Company Number: US-BIOGEN-2013BI082669

PATIENT
  Age: 59 Year
  Sex: Male

DRUGS (3)
  1. AVONEX [Suspect]
     Active Substance: INTERFERON BETA-1A
     Route: 030
  2. AVONEX [Suspect]
     Active Substance: INTERFERON BETA-1A
     Indication: MULTIPLE SCLEROSIS
     Route: 030
     Dates: start: 20130119, end: 20130619
  3. AVONEX [Suspect]
     Active Substance: INTERFERON BETA-1A
     Route: 030
     Dates: start: 2011, end: 20130209

REACTIONS (16)
  - Blindness [Not Recovered/Not Resolved]
  - Tremor [Unknown]
  - Retinal injury [Not Recovered/Not Resolved]
  - Tinnitus [Not Recovered/Not Resolved]
  - Mobility decreased [Not Recovered/Not Resolved]
  - Drug ineffective [Recovered/Resolved]
  - Blepharospasm [Unknown]
  - Urinary incontinence [Unknown]
  - Facial pain [Unknown]
  - General symptom [Unknown]
  - Paraesthesia [Unknown]
  - Cataract [Not Recovered/Not Resolved]
  - Pain [Unknown]
  - Anal incontinence [Unknown]
  - Muscular weakness [Unknown]
  - Fatigue [Unknown]

NARRATIVE: CASE EVENT DATE: 201306
